FAERS Safety Report 6806076-6 (Version None)
Quarter: 2010Q2

REPORT INFORMATION
  Report Type: 
  Country: None (occurrence: None)
  Receive Date: 20100629
  Receipt Date: 20080923
  Transmission Date: 20101027
  Serious: No
  Sender: FDA-Public Use
  Company Number: US-PFIZER INC-2007079588

PATIENT
  Sex: Male
  Weight: 68.04 kg

DRUGS (10)
  1. XANAX [Suspect]
     Indication: PANIC ATTACK
     Dates: start: 20070808
  2. XANAX [Interacting]
     Indication: ANXIETY
  3. LEXAPRO [Interacting]
     Indication: DEPRESSION
     Dates: start: 20080801
  4. LEXAPRO [Interacting]
     Indication: ANXIETY
  5. VALIUM [Interacting]
     Indication: PANIC ATTACK
     Dosage: FREQUENCY: PRN
  6. ZOLPIDEM TARTRATE [Concomitant]
  7. KLONOPIN [Concomitant]
  8. LEVBID [Concomitant]
  9. HYOSCYAMINE SULFATE [Concomitant]
  10. ULTRAM [Concomitant]

REACTIONS (9)
  - AKATHISIA [None]
  - ASTHENIA [None]
  - DRUG INEFFECTIVE [None]
  - DRUG INTERACTION [None]
  - DRUG TOLERANCE [None]
  - FATIGUE [None]
  - INCORRECT DOSE ADMINISTERED [None]
  - NAUSEA [None]
  - PAIN [None]
